FAERS Safety Report 4772553-5 (Version None)
Quarter: 2005Q3

REPORT INFORMATION
  Report Type: 
  Country: None (occurrence: None)
  Receive Date: 20050916
  Receipt Date: 20050916
  Transmission Date: 20060218
  Serious: Yes (Other)
  Sender: FDA-Public Use
  Company Number: None

PATIENT
  Age: 34 Year
  Sex: Male
  Weight: 116.5744 kg

DRUGS (4)
  1. LIPITOR [Suspect]
     Indication: HYPERCHOLESTEROLAEMIA
     Dosage: 10 MG ONCE A DAY PO
     Route: 048
     Dates: start: 20040301, end: 20050912
  2. ALTACE [Concomitant]
  3. NOVOLOG [Concomitant]
  4. LANTUS [Concomitant]

REACTIONS (1)
  - MUSCULAR WEAKNESS [None]
